FAERS Safety Report 8362986-2 (Version None)
Quarter: 2012Q2

REPORT INFORMATION
  Report Type: 
  Country: None (occurrence: None)
  Receive Date: 20120514
  Receipt Date: 20120510
  Transmission Date: 20120825
  Serious: Yes (Other)
  Sender: FDA-Public Use
  Company Number: ADR-2008-5966

PATIENT
  Sex: Female

DRUGS (3)
  1. BACLOFEN [Suspect]
     Indication: PAIN
     Dosage: , MCG, DAILY, INTRATH
     Route: 037
  2. MORPHINE SULFATE [Concomitant]
  3. BUPIVICAINE [Concomitant]

REACTIONS (15)
  - GLOSSODYNIA [None]
  - ARTHRITIS INFECTIVE [None]
  - PAIN [None]
  - HEADACHE [None]
  - SYNCOPE [None]
  - THROMBOSIS [None]
  - TONGUE DISCOLOURATION [None]
  - ABDOMINAL PAIN [None]
  - VISION BLURRED [None]
  - BURNING SENSATION [None]
  - NEUROMA [None]
  - PAIN IN EXTREMITY [None]
  - COMA [None]
  - DEVICE DISLOCATION [None]
  - FUNCTIONAL GASTROINTESTINAL DISORDER [None]
